FAERS Safety Report 4584403-0 (Version None)
Quarter: 2005Q1

REPORT INFORMATION
  Report Type: 
  Country: None (occurrence: None)
  Receive Date: 20050125
  Receipt Date: 20040928
  Transmission Date: 20050727
  Serious: Yes (Hospitalization, Other)
  Sender: FDA-Public Use
  Company Number: US_000744932

PATIENT
  Age: 61 Year
  Sex: Female
  Weight: 96 kg

DRUGS (9)
  1. HUMULIN N [Suspect]
     Indication: DIABETES MELLITUS NON-INSULIN-DEPENDENT
  2. HUMULIN R [Suspect]
     Indication: DIABETES MELLITUS
  3. FORTEO [Concomitant]
     Indication: OSTEOPOROSIS
     Dates: start: 20040920
  4. PREDNISONE [Concomitant]
  5. GLUCOTROX XL (GLIPIZIDE) [Concomitant]
  6. CALCIUM WITH VITAMIN D [Concomitant]
  7. MULTI-VITAMIN [Concomitant]
  8. SULAR [Concomitant]
  9. TRIAMTERENE [Concomitant]

REACTIONS (17)
  - BALANCE DISORDER [None]
  - BLOOD GLUCOSE DECREASED [None]
  - BLOOD TEST ABNORMAL [None]
  - BODY HEIGHT DECREASED [None]
  - CARDIAC DISORDER [None]
  - CUSHINGOID [None]
  - DIZZINESS [None]
  - HYPERGLYCAEMIA [None]
  - MULTIPLE ALLERGIES [None]
  - NORMOCHROMIC NORMOCYTIC ANAEMIA [None]
  - OSTEOARTHRITIS [None]
  - PAIN [None]
  - PERIARTHRITIS [None]
  - POLYMYALGIA RHEUMATICA [None]
  - STOMACH DISCOMFORT [None]
  - THYROID DISORDER [None]
  - WEIGHT INCREASED [None]
